FAERS Safety Report 7863981-X (Version None)
Quarter: 2011Q4

REPORT INFORMATION
  Report Type: 
  Country: None (occurrence: None)
  Receive Date: 20111028
  Receipt Date: 20111021
  Transmission Date: 20120403
  Serious: No
  Sender: FDA-Public Use
  Company Number: US-BIOGENIDEC-2011BI040375

PATIENT
  Sex: Female

DRUGS (3)
  1. NUVIGIL [Concomitant]
     Indication: PRODUCT USED FOR UNKNOWN INDICATION
     Dates: end: 20110928
  2. TYSABRI [Suspect]
     Indication: MULTIPLE SCLEROSIS
     Route: 042
     Dates: start: 20070612
  3. PROVIGIL [Concomitant]
     Indication: PRODUCT USED FOR UNKNOWN INDICATION
     Dates: start: 20111001, end: 20111001

REACTIONS (5)
  - DYSPHONIA [None]
  - DIARRHOEA [None]
  - VISION BLURRED [None]
  - PAIN [None]
  - SENSATION OF HEAVINESS [None]
